FAERS Safety Report 17593981 (Version 4)
Quarter: 2020Q2

REPORT INFORMATION
  Report Type: Report from Study
  Country: None (occurrence: US)
  Receive Date: 20200328
  Receipt Date: 20200619
  Transmission Date: 20200713
  Serious: Yes (Death, Other)
  Sender: FDA-Public Use
  Company Number: US-ABBVIE-20K-163-3338881-00

PATIENT
  Sex: Male

DRUGS (2)
  1. SKYRIZI [Suspect]
     Active Substance: RISANKIZUMAB-RZAA
     Indication: PSORIASIS
     Dosage: (2-75 MG PFS) ON WEEK 0,
     Route: 058
     Dates: start: 20200115, end: 20200115
  2. SKYRIZI [Suspect]
     Active Substance: RISANKIZUMAB-RZAA
     Dosage: (2-75 MG PFS) ON WEEK 4 THEN EVERY 12 WEEK THERE AFTER
     Route: 058
     Dates: start: 20200212, end: 20200212

REACTIONS (2)
  - Death [Fatal]
  - Pulmonary fibrosis [Unknown]

NARRATIVE: CASE EVENT DATE: 2020
